FAERS Safety Report 21940954 (Version 1)
Quarter: 2023Q1

REPORT INFORMATION
  Report Type: Report from Study
  Country: US (occurrence: US)
  Receive Date: 20230202
  Receipt Date: 20230202
  Transmission Date: 20230417
  Serious: No
  Sender: FDA-Public Use
  Company Number: US-EXELIXIS-CABO-22053134

PATIENT
  Age: 66 Year
  Sex: Male

DRUGS (5)
  1. CABOMETYX [Suspect]
     Active Substance: CABOZANTINIB S-MALATE
     Indication: Renal cell carcinoma
     Dosage: 60 MG, QD
     Route: 048
     Dates: start: 20220620, end: 20220708
  2. CABOMETYX [Suspect]
     Active Substance: CABOZANTINIB S-MALATE
     Dosage: 20 MG, QD
     Route: 048
     Dates: start: 202207
  3. CABOMETYX [Suspect]
     Active Substance: CABOZANTINIB S-MALATE
     Dosage: 60 MG
     Route: 048
     Dates: start: 202209, end: 202210
  4. CABOMETYX [Suspect]
     Active Substance: CABOZANTINIB S-MALATE
     Dosage: 20 MG
     Route: 048
     Dates: start: 20230105
  5. OXYCODONE [Suspect]
     Active Substance: OXYCODONE
     Indication: Pain
     Dosage: UNK, Q4HR

REACTIONS (11)
  - Pharyngeal swelling [Unknown]
  - Oropharyngeal pain [Recovering/Resolving]
  - Skin weeping [Unknown]
  - Pain [Unknown]
  - Fatigue [Unknown]
  - Dizziness [Unknown]
  - Cough [Unknown]
  - Palmar-plantar erythrodysaesthesia syndrome [Unknown]
  - Abdominal pain upper [Unknown]
  - Flatulence [Unknown]
  - Constipation [Unknown]

NARRATIVE: CASE EVENT DATE: 20220620
